FAERS Safety Report 18456387 (Version 1)
Quarter: 2020Q4

REPORT INFORMATION
  Report Type: Spontaneous
  Country: CN (occurrence: CN)
  Receive Date: 20201103
  Receipt Date: 20201103
  Transmission Date: 20210114
  Serious: Yes (Other)
  Sender: FDA-Public Use
  Company Number: CN-GLAXOSMITHKLINE-CN2020APC213199

PATIENT
  Age: 63 Year
  Sex: Female
  Weight: 63 kg

DRUGS (3)
  1. VENTOLIN [Suspect]
     Active Substance: ALBUTEROL SULFATE
     Indication: ASTHMA
  2. SODIUM CHLORIDE. [Concomitant]
     Active Substance: SODIUM CHLORIDE
     Indication: SYMPTOMATIC TREATMENT
     Dosage: 2 ML, QD
     Route: 055
     Dates: start: 20201025, end: 20201025
  3. VENTOLIN [Suspect]
     Active Substance: ALBUTEROL SULFATE
     Indication: INFLAMMATION
     Dosage: 5 G, BID
     Route: 055
     Dates: start: 20201025, end: 20201025

REACTIONS (5)
  - Palpitations [Recovered/Resolved]
  - Vomiting [Recovered/Resolved]
  - Tremor [Recovered/Resolved]
  - Tonsillar hypertrophy [Recovered/Resolved]
  - Nausea [Recovered/Resolved]

NARRATIVE: CASE EVENT DATE: 20201025
